FAERS Safety Report 16576672 (Version 3)
Quarter: 2019Q4

REPORT INFORMATION
  Report Type: Report from Study
  Country: None (occurrence: FR)
  Receive Date: 20190716
  Receipt Date: 20191030
  Transmission Date: 20200122
  Serious: Yes (Hospitalization, Other)
  Sender: FDA-Public Use
  Company Number: FR-ABBVIE-19K-056-2854245-00

PATIENT
  Age: 70 Year
  Sex: Female

DRUGS (6)
  1. DUODOPA [Suspect]
     Active Substance: CARBIDOPA\LEVODOPA
     Dosage: MATINAL BOLUS WAS 3 ML, EXTRA DOSE WAS 2 ML AND CONTINUOUS FLOW RATE WAS 2.2 ML/HOUR
     Route: 050
  2. DUODOPA [Suspect]
     Active Substance: CARBIDOPA\LEVODOPA
     Indication: PARKINSON^S DISEASE
     Route: 050
     Dates: start: 20140721
  3. FRESUBIN ORIGINAL FIBRE [Concomitant]
     Dosage: AT NIGHT
  4. FRESUBIN ORIGINAL FIBRE [Concomitant]
     Indication: PRODUCT USED FOR UNKNOWN INDICATION
     Dosage: DAY 1
  5. FRESUBIN ORIGINAL FIBRE [Concomitant]
     Dosage: UNTIL 750 MG
  6. FRESUBIN ORIGINAL FIBRE [Concomitant]
     Dosage: AT NIGHT

REACTIONS (8)
  - Folate deficiency [Not Recovered/Not Resolved]
  - Unevaluable event [Recovered/Resolved]
  - Malnutrition [Not Recovered/Not Resolved]
  - Hypophagia [Not Recovered/Not Resolved]
  - Weight decreased [Not Recovered/Not Resolved]
  - Dyskinesia [Not Recovered/Not Resolved]
  - Dysstasia [Not Recovered/Not Resolved]
  - Dehydration [Not Recovered/Not Resolved]
